FAERS Safety Report 12718260 (Version 2)
Quarter: 2017Q3

REPORT INFORMATION
  Report Type: Spontaneous
  Country: IN (occurrence: IN)
  Receive Date: 20160906
  Receipt Date: 20170901
  Transmission Date: 20171127
  Serious: Yes (Other)
  Sender: FDA-Public Use
  Company Number: IN-ABBVIE-16P-078-1719602-00

PATIENT
  Age: 14 Year
  Sex: Male

DRUGS (3)
  1. VALPROATE SODIUM. [Suspect]
     Active Substance: VALPROATE SODIUM
     Indication: EPILEPSY
     Route: 065
  2. CLOBAZAM [Concomitant]
     Active Substance: CLOBAZAM
     Indication: EPILEPSY
  3. OXCARBAZEPINE. [Concomitant]
     Active Substance: OXCARBAZEPINE
     Indication: PRODUCT USED FOR UNKNOWN INDICATION

REACTIONS (9)
  - Anxiety [Recovering/Resolving]
  - Feeling guilty [Unknown]
  - Suicidal ideation [Unknown]
  - Drug withdrawal syndrome [Recovering/Resolving]
  - Major depression [Unknown]
  - Depressed mood [Unknown]
  - Mania [Unknown]
  - Alcohol abuse [Unknown]
  - Feelings of worthlessness [Unknown]
